FAERS Safety Report 9903239 (Version 1)
Quarter: 2014Q1

REPORT INFORMATION
  Report Type: Spontaneous
  Country: FR (occurrence: FR)
  Receive Date: 20140217
  Receipt Date: 20140217
  Transmission Date: 20141002
  Serious: Yes (Hospitalization)
  Sender: FDA-Public Use
  Company Number: PHHY2014FR015623

PATIENT
  Age: 66 Year
  Sex: Male

DRUGS (9)
  1. SINTROM [Suspect]
     Indication: ATRIAL FIBRILLATION
     Dosage: UNK UKN, UNK
     Route: 048
     Dates: end: 20131129
  2. AMIODARONE [Interacting]
     Dosage: UNK UKN, UNK
     Route: 048
  3. PRAVASTATIN [Interacting]
     Indication: DYSLIPIDAEMIA
     Dosage: UNK UKN, UNK
     Route: 048
     Dates: end: 20131129
  4. KARDEGIC [Interacting]
     Dosage: UNK UKN, UNK
     Route: 048
     Dates: end: 20131129
  5. CARDENSIEL [Concomitant]
     Indication: HYPERTENSION
     Dosage: 2.5 MG, QD
     Route: 048
  6. PROCORALAN [Concomitant]
     Indication: HYPERTENSION
     Dosage: UNK UKN, UNK
     Route: 048
  7. LEVOTHYROX [Concomitant]
     Indication: HYPOTHYROIDISM
     Dosage: UNK UKN, UNK
     Route: 048
  8. FUROSEMIDE [Concomitant]
     Indication: HYPERTENSION
     Dosage: UNK UKN, UNK
     Route: 048
  9. INSULATARD [Concomitant]
     Indication: TYPE 2 DIABETES MELLITUS
     Dosage: UNK UKN, UNK
     Route: 048
     Dates: end: 20131129

REACTIONS (3)
  - International normalised ratio increased [Recovered/Resolved]
  - Conjunctival haemorrhage [Recovered/Resolved]
  - Drug interaction [Unknown]
